FAERS Safety Report 7954311-3 (Version None)
Quarter: 2011Q4

REPORT INFORMATION
  Report Type: 
  Country: None (occurrence: None)
  Receive Date: 20111202
  Receipt Date: 20111122
  Transmission Date: 20120403
  Serious: Yes (Hospitalization)
  Sender: FDA-Public Use
  Company Number: US-ABBOTT-11P-163-0849482-00

PATIENT
  Sex: Female
  Weight: 74.456 kg

DRUGS (9)
  1. LEFLUNOMIDE [Concomitant]
     Indication: RHEUMATOID ARTHRITIS
  2. NORVASC [Concomitant]
     Indication: HYPERTENSION
  3. LIVALO [Concomitant]
     Indication: BLOOD CHOLESTEROL INCREASED
  4. METFORMIN HCL [Concomitant]
     Indication: DIABETES MELLITUS
  5. HUMIRA [Suspect]
     Indication: RHEUMATOID ARTHRITIS
     Dates: start: 20090101, end: 20100101
  6. HUMIRA [Suspect]
     Dates: start: 20110101
  7. ACCUPRIL [Concomitant]
     Indication: HYPERTENSION
  8. HYDROXYCHLOROQUINE [Concomitant]
     Indication: RHEUMATOID ARTHRITIS
  9. LYRICA [Concomitant]
     Indication: NEUROPATHY PERIPHERAL

REACTIONS (9)
  - WALKING AID USER [None]
  - ERYTHEMA [None]
  - ARTHRITIS [None]
  - OEDEMA PERIPHERAL [None]
  - ARTHRALGIA [None]
  - BONE PAIN [None]
  - INTERVERTEBRAL DISC DISORDER [None]
  - JOINT SWELLING [None]
  - PAIN IN EXTREMITY [None]
